FAERS Safety Report 7218112-6 (Version None)
Quarter: 2011Q1

REPORT INFORMATION
  Report Type: 
  Country: None (occurrence: None)
  Receive Date: 20110110
  Receipt Date: 20101230
  Transmission Date: 20110831
  Serious: Yes (Disabling, Other)
  Sender: FDA-Public Use
  Company Number: US-MERCK-1005USA02073

PATIENT
  Age: 72 Year
  Sex: Female
  Weight: 60 kg

DRUGS (2)
  1. FOSAMAX [Suspect]
     Indication: OSTEOPOROSIS
     Route: 048
     Dates: start: 20040119, end: 20050301
  2. BONIVA [Suspect]
     Route: 048
     Dates: start: 20050301, end: 20070315

REACTIONS (24)
  - MALIGNANT MELANOMA [None]
  - DISTURBANCE IN ATTENTION [None]
  - FLATULENCE [None]
  - DYSPEPSIA [None]
  - DECREASED APPETITE [None]
  - EMOTIONAL DISTRESS [None]
  - ERUCTATION [None]
  - SKIN LESION [None]
  - MEMORY IMPAIRMENT [None]
  - TEMPOROMANDIBULAR JOINT SYNDROME [None]
  - ABDOMINAL DISTENSION [None]
  - FATIGUE [None]
  - CONSTIPATION [None]
  - OSTEONECROSIS OF JAW [None]
  - DYSPHAGIA [None]
  - INSOMNIA [None]
  - IRRITABILITY [None]
  - LIBIDO DECREASED [None]
  - ARTHRALGIA [None]
  - HEADACHE [None]
  - DENTAL CARIES [None]
  - EYE DISORDER [None]
  - XANTHELASMA [None]
  - PALPITATIONS [None]
